FAERS Safety Report 5594784-7 (Version None)
Quarter: 2008Q1

REPORT INFORMATION
  Report Type: 
  Country: None (occurrence: None)
  Receive Date: 20080117
  Receipt Date: 20080114
  Transmission Date: 20080703
  Serious: Yes (Death, Hospitalization)
  Sender: FDA-Public Use
  Company Number: A0703693A

PATIENT
  Age: 73 Year
  Sex: Female

DRUGS (2)
  1. AVANDIA [Suspect]
     Indication: DRUG USE FOR UNKNOWN INDICATION
     Route: 048
  2. ACTOS [Suspect]
     Indication: DRUG USE FOR UNKNOWN INDICATION
     Dates: start: 20071203, end: 20071201

REACTIONS (4)
  - BEDRIDDEN [None]
  - DEATH [None]
  - PAIN IN EXTREMITY [None]
  - PULMONARY OEDEMA [None]
